FAERS Safety Report 24758393 (Version 3)
Quarter: 2025Q2

REPORT INFORMATION
  Report Type: Report from Study
  Country: US (occurrence: US)
  Receive Date: 20241220
  Receipt Date: 20250407
  Transmission Date: 20250717
  Serious: Yes (Hospitalization)
  Sender: ROCHE
  Company Number: US-ROCHE-10000092158

PATIENT
  Age: 67 Year
  Sex: Female

DRUGS (2)
  1. PULMOZYME [Suspect]
     Active Substance: DORNASE ALFA
     Indication: Bronchiectasis
     Dosage: NEBULIZE THE CONTENTS OF 1 VIAL(S) (2.5MG TOTAL) TWICE A DAY
     Route: 055
  2. PULMOZYME [Suspect]
     Active Substance: DORNASE ALFA
     Dosage: SOLUTION, INHALE THE CONTENTS OF ONE VIAL VIA NEBULIZATION TWICE DAILY
     Route: 065

REACTIONS (5)
  - Off label use [Unknown]
  - Achromobacter infection [Unknown]
  - Pseudomonas infection [Unknown]
  - Pseudomonas infection [Not Recovered/Not Resolved]
  - Achromobacter infection [Not Recovered/Not Resolved]

NARRATIVE: CASE EVENT DATE: 20240901
